FAERS Safety Report 13397094 (Version 1)
Quarter: 2017Q2

REPORT INFORMATION
  Report Type: Spontaneous
  Country: US (occurrence: US)
  Receive Date: 20170403
  Receipt Date: 20170403
  Transmission Date: 20170830
  Serious: No
  Sender: FDA-Public Use
  Company Number: US-JNJFOC-20170207721

PATIENT
  Age: 22 Year
  Sex: Male

DRUGS (50)
  1. RISPERDAL [Suspect]
     Active Substance: RISPERIDONE
     Indication: IMPULSE-CONTROL DISORDER
     Route: 048
  2. CLONIDINE. [Suspect]
     Active Substance: CLONIDINE
     Indication: ATTENTION DEFICIT/HYPERACTIVITY DISORDER
     Route: 065
  3. ATIVAN [Suspect]
     Active Substance: LORAZEPAM
     Indication: AGGRESSION
     Route: 065
  4. BENADRYL [Suspect]
     Active Substance: DIPHENHYDRAMINE HYDROCHLORIDE
     Indication: OPPOSITIONAL DEFIANT DISORDER
     Route: 065
  5. RISPERDAL [Suspect]
     Active Substance: RISPERIDONE
     Indication: ATTENTION DEFICIT/HYPERACTIVITY DISORDER
     Route: 048
  6. CLONIDINE. [Suspect]
     Active Substance: CLONIDINE
     Indication: IMPULSE-CONTROL DISORDER
     Route: 065
  7. CLONIDINE. [Suspect]
     Active Substance: CLONIDINE
     Indication: SCHIZOPHRENIA
     Route: 065
  8. KLONOPIN [Suspect]
     Active Substance: CLONAZEPAM
     Indication: SCHIZOPHRENIA
     Route: 065
  9. BENADRYL [Suspect]
     Active Substance: DIPHENHYDRAMINE HYDROCHLORIDE
     Indication: INTENTIONAL SELF-INJURY
     Route: 065
  10. BENADRYL [Suspect]
     Active Substance: DIPHENHYDRAMINE HYDROCHLORIDE
     Indication: ATTENTION DEFICIT/HYPERACTIVITY DISORDER
     Route: 065
  11. RISPERDAL [Suspect]
     Active Substance: RISPERIDONE
     Indication: SCHIZOPHRENIA
     Route: 048
  12. DEPAKOTE [Suspect]
     Active Substance: DIVALPROEX SODIUM
     Indication: AUTISM SPECTRUM DISORDER
     Route: 065
  13. SEROQUEL [Suspect]
     Active Substance: QUETIAPINE FUMARATE
     Indication: AGGRESSION
     Route: 065
  14. SEROQUEL [Suspect]
     Active Substance: QUETIAPINE FUMARATE
     Indication: IMPULSE-CONTROL DISORDER
     Route: 065
  15. ATIVAN [Suspect]
     Active Substance: LORAZEPAM
     Indication: INTENTIONAL SELF-INJURY
     Route: 065
  16. ATIVAN [Suspect]
     Active Substance: LORAZEPAM
     Indication: OPPOSITIONAL DEFIANT DISORDER
     Route: 065
  17. RISPERDAL [Suspect]
     Active Substance: RISPERIDONE
     Indication: OPPOSITIONAL DEFIANT DISORDER
     Route: 048
  18. KLONOPIN [Suspect]
     Active Substance: CLONAZEPAM
     Indication: ATTENTION DEFICIT/HYPERACTIVITY DISORDER
     Route: 065
  19. KLONOPIN [Suspect]
     Active Substance: CLONAZEPAM
     Indication: OPPOSITIONAL DEFIANT DISORDER
     Route: 065
  20. HALDOL DECANOAS [Suspect]
     Active Substance: HALOPERIDOL DECANOATE
     Indication: ATTENTION DEFICIT/HYPERACTIVITY DISORDER
     Route: 030
  21. CLONIDINE. [Suspect]
     Active Substance: CLONIDINE
     Indication: AGGRESSION
     Route: 065
  22. CLONIDINE. [Suspect]
     Active Substance: CLONIDINE
     Indication: AUTISM SPECTRUM DISORDER
     Route: 065
  23. DEPAKOTE [Suspect]
     Active Substance: DIVALPROEX SODIUM
     Indication: AGGRESSION
     Route: 065
  24. ATIVAN [Suspect]
     Active Substance: LORAZEPAM
     Indication: SCHIZOPHRENIA
     Route: 065
  25. KLONOPIN [Suspect]
     Active Substance: CLONAZEPAM
     Indication: IMPULSE-CONTROL DISORDER
     Route: 065
  26. HALDOL DECANOAS [Suspect]
     Active Substance: HALOPERIDOL DECANOATE
     Indication: OPPOSITIONAL DEFIANT DISORDER
     Route: 030
  27. NAFTIN [Suspect]
     Active Substance: NAFTIFINE HYDROCHLORIDE
     Indication: TINEA PEDIS
     Route: 061
  28. RISPERDAL [Suspect]
     Active Substance: RISPERIDONE
     Indication: AUTISM SPECTRUM DISORDER
     Route: 048
  29. CLONIDINE. [Suspect]
     Active Substance: CLONIDINE
     Indication: OPPOSITIONAL DEFIANT DISORDER
     Route: 065
  30. DEPAKOTE [Suspect]
     Active Substance: DIVALPROEX SODIUM
     Indication: OPPOSITIONAL DEFIANT DISORDER
     Route: 065
  31. DEPAKOTE [Suspect]
     Active Substance: DIVALPROEX SODIUM
     Indication: ATTENTION DEFICIT/HYPERACTIVITY DISORDER
     Route: 065
  32. DEPAKOTE [Suspect]
     Active Substance: DIVALPROEX SODIUM
     Indication: SCHIZOPHRENIA
     Route: 065
  33. SEROQUEL [Suspect]
     Active Substance: QUETIAPINE FUMARATE
     Indication: OPPOSITIONAL DEFIANT DISORDER
     Route: 065
  34. BENADRYL [Suspect]
     Active Substance: DIPHENHYDRAMINE HYDROCHLORIDE
     Indication: SCHIZOPHRENIA
     Route: 065
  35. HALDOL DECANOAS [Suspect]
     Active Substance: HALOPERIDOL DECANOATE
     Indication: AUTISM SPECTRUM DISORDER
     Route: 030
  36. DEPAKOTE [Suspect]
     Active Substance: DIVALPROEX SODIUM
     Indication: IMPULSE-CONTROL DISORDER
     Route: 065
  37. SEROQUEL [Suspect]
     Active Substance: QUETIAPINE FUMARATE
     Indication: ATTENTION DEFICIT/HYPERACTIVITY DISORDER
     Route: 065
  38. SEROQUEL [Suspect]
     Active Substance: QUETIAPINE FUMARATE
     Indication: AUTISM SPECTRUM DISORDER
     Route: 065
  39. ATIVAN [Suspect]
     Active Substance: LORAZEPAM
     Indication: AUTISM SPECTRUM DISORDER
     Route: 065
  40. KLONOPIN [Suspect]
     Active Substance: CLONAZEPAM
     Indication: AUTISM SPECTRUM DISORDER
     Route: 065
  41. BENADRYL [Suspect]
     Active Substance: DIPHENHYDRAMINE HYDROCHLORIDE
     Indication: AGGRESSION
     Route: 065
  42. BENADRYL [Suspect]
     Active Substance: DIPHENHYDRAMINE HYDROCHLORIDE
     Indication: IMPULSE-CONTROL DISORDER
     Route: 065
  43. HALDOL DECANOAS [Suspect]
     Active Substance: HALOPERIDOL DECANOATE
     Indication: SCHIZOPHRENIA
     Route: 030
  44. RISPERDAL [Suspect]
     Active Substance: RISPERIDONE
     Indication: AGGRESSION
     Route: 048
  45. SEROQUEL [Suspect]
     Active Substance: QUETIAPINE FUMARATE
     Indication: SCHIZOPHRENIA
     Route: 065
  46. ATIVAN [Suspect]
     Active Substance: LORAZEPAM
     Indication: IMPULSE-CONTROL DISORDER
     Route: 065
  47. ATIVAN [Suspect]
     Active Substance: LORAZEPAM
     Indication: ATTENTION DEFICIT/HYPERACTIVITY DISORDER
     Route: 065
  48. KLONOPIN [Suspect]
     Active Substance: CLONAZEPAM
     Indication: AGGRESSION
     Route: 065
  49. BENADRYL [Suspect]
     Active Substance: DIPHENHYDRAMINE HYDROCHLORIDE
     Indication: AUTISM SPECTRUM DISORDER
     Route: 065
  50. HALDOL DECANOAS [Suspect]
     Active Substance: HALOPERIDOL DECANOATE
     Indication: IMPULSE-CONTROL DISORDER
     Route: 030

REACTIONS (31)
  - Gynaecomastia [Unknown]
  - Sexual dysfunction [Unknown]
  - Dysuria [Unknown]
  - Anxiety [Unknown]
  - Blood prolactin increased [Unknown]
  - Product use in unapproved indication [Unknown]
  - Rhinorrhoea [Unknown]
  - Increased appetite [Unknown]
  - Weight increased [Unknown]
  - Nervousness [Unknown]
  - Hypogonadism [Unknown]
  - Somnolence [Unknown]
  - Acne [Unknown]
  - Dry skin [Unknown]
  - Insomnia [Unknown]
  - Injection site pain [Unknown]
  - Irritability [Unknown]
  - Abdominal discomfort [Unknown]
  - Coordination abnormal [Unknown]
  - Fatigue [Unknown]
  - Nausea [Unknown]
  - Disturbance in attention [Unknown]
  - Visual impairment [Unknown]
  - Libido decreased [Unknown]
  - Dry throat [Unknown]
  - Headache [Unknown]
  - Dry mouth [Unknown]
  - Nasal dryness [Unknown]
  - Off label use [Unknown]
  - Dizziness [Unknown]
  - Constipation [Unknown]

NARRATIVE: CASE EVENT DATE: 20110920
